FAERS Safety Report 10969846 (Version 1)
Quarter: 2015Q1

REPORT INFORMATION
  Report Type: Report from Study
  Country: FR (occurrence: FR)
  Receive Date: 20150331
  Receipt Date: 20150331
  Transmission Date: 20150721
  Serious: Yes (Other)
  Sender: FDA-Public Use
  Company Number: FR-ROCHE-1557087

PATIENT

DRUGS (2)
  1. LEDIPASVIR/SOFOSBUVIR [Suspect]
     Active Substance: LEDIPASVIR\SOFOSBUVIR
     Indication: CHRONIC HEPATITIS C
     Dosage: 90 MG LEDIPASVIR AND 400 MG SOFOSBUVIR
     Route: 048
  2. RIBAVIRIN. [Suspect]
     Active Substance: RIBAVIRIN
     Indication: CHRONIC HEPATITIS C
     Dosage: PATIENTS WHO WEIGHED LESS THAN 75 KG RECEIVED 1000 MG DAILY AS TWO TABLETS IN THE MORNING AND THREE
     Route: 048

REACTIONS (4)
  - Lipase abnormal [Unknown]
  - Hyperbilirubinaemia [Unknown]
  - Lymphocyte count abnormal [Unknown]
  - Haemoglobin abnormal [Unknown]
